FAERS Safety Report 20422471 (Version 1)
Quarter: 2022Q1

REPORT INFORMATION
  Report Type: Report from Study
  Country: US (occurrence: US)
  Receive Date: 20220203
  Receipt Date: 20220203
  Transmission Date: 20220423
  Serious: No
  Sender: FDA-Public Use
  Company Number: US-AURINIA PHARMACEUTICALS INC.-AUR-000806

PATIENT
  Sex: Female

DRUGS (2)
  1. LUPKYNIS [Suspect]
     Active Substance: VOCLOSPORIN
     Indication: Lupus nephritis
     Dosage: 7.9 MILLIGRAM, BID, IF SYSTOLIC BLOOD PRESSURE WAS BELOW 90
  2. LUPKYNIS [Suspect]
     Active Substance: VOCLOSPORIN
     Dosage: 7.9 MILLIGRAM, QD, IF SYSTOLIC BLOOD PRESSURE WAS ABOVE 90

REACTIONS (2)
  - Blood pressure abnormal [Not Recovered/Not Resolved]
  - Incorrect dose administered [Unknown]
